FAERS Safety Report 10256100 (Version 1)
Quarter: 2014Q2

REPORT INFORMATION
  Report Type: Report from Study
  Country: US (occurrence: US)
  Receive Date: 20140624
  Receipt Date: 20140624
  Transmission Date: 20141212
  Serious: Yes (Other)
  Sender: FDA-Public Use
  Company Number: US-BAXTER-2014BAX032455

PATIENT
  Sex: 0

DRUGS (3)
  1. GAMMAGARD LIQUID [Suspect]
     Indication: SUSAC^S SYNDROME
     Route: 042
  2. GAMMAGARD LIQUID [Suspect]
     Indication: OFF LABEL USE
  3. METHYLPREDNISOLONE [Suspect]
     Indication: SUSAC^S SYNDROME
     Route: 065

REACTIONS (1)
  - Disease progression [Unknown]
